FAERS Safety Report 6467518-1 (Version None)
Quarter: 2009Q4

REPORT INFORMATION
  Report Type: 
  Country: None (occurrence: None)
  Receive Date: 20091127
  Receipt Date: 20091116
  Transmission Date: 20100525
  Serious: Yes (Hospitalization)
  Sender: FDA-Public Use
  Company Number: CIP09003009

PATIENT
  Age: 88 Year
  Sex: Female

DRUGS (6)
  1. RISEDRONATE SODIUM [Suspect]
     Indication: OSTEOPOROSIS
     Dosage: 2.5 MG DAILY, ORAL
     Route: 048
     Dates: start: 20090812, end: 20090826
  2. AMLODIPINE BESYLATE [Suspect]
     Indication: HYPERTENSION
     Dosage: ORAL
     Route: 048
     Dates: start: 20090805, end: 20090902
  3. NEUER (CETRAXATE HYDROCHLORIDE) [Concomitant]
  4. JUVELA N (TOCOPHERYL NICOTINATE) [Concomitant]
  5. VITAMEDIN  (CYANOCOBALAMIN, PYRIDOXINE HYDROCHLORIDE, THIAMINE HCL) [Concomitant]
  6. BUFFERIN [Suspect]
     Dosage: 81 MG, ORAL
     Route: 048
     Dates: end: 20090902

REACTIONS (2)
  - GRANULOCYTOPENIA [None]
  - OSTEOPOROSIS [None]
